FAERS Safety Report 8301893-8 (Version None)
Quarter: 2012Q2

REPORT INFORMATION
  Report Type: 
  Country: None (occurrence: None)
  Receive Date: 20120420
  Receipt Date: 20120412
  Transmission Date: 20120825
  Serious: Yes (Hospitalization, Other)
  Sender: FDA-Public Use
  Company Number: US-BAYER-2012-023921

PATIENT
  Age: 28 Year
  Sex: Female

DRUGS (1)
  1. MIRENA [Suspect]
     Indication: CONTRACEPTION
     Dosage: 1 DF, UNK
     Dates: start: 20080825, end: 20120223

REACTIONS (4)
  - ABDOMINAL PAIN [None]
  - PREGNANCY TEST URINE POSITIVE [None]
  - ABORTION [None]
  - HAEMORRHAGE IN PREGNANCY [None]
